FAERS Safety Report 5607533-0 (Version None)
Quarter: 2008Q1

REPORT INFORMATION
  Report Type: 
  Country: None (occurrence: None)
  Receive Date: 20080130
  Receipt Date: 20080125
  Transmission Date: 20080703
  Serious: Yes (Death, Hospitalization)
  Sender: FDA-Public Use
  Company Number: PHEH2007US16202

PATIENT
  Age: 75 Year
  Sex: Male

DRUGS (1)
  1. EXJADE [Suspect]
     Indication: IRON OVERLOAD
     Dosage: 1000 MG QD
     Route: 048
     Dates: start: 20070501, end: 20071201

REACTIONS (3)
  - COUGH [None]
  - DYSPNOEA [None]
  - PNEUMONIA [None]
